FAERS Safety Report 6227940-5 (Version None)
Quarter: 2009Q2

REPORT INFORMATION
  Report Type: 
  Country: None (occurrence: None)
  Receive Date: 20090612
  Receipt Date: 20090609
  Transmission Date: 20091009
  Serious: Yes (Hospitalization)
  Sender: FDA-Public Use
  Company Number: FR-ASTRAZENECA-2009CG01179

PATIENT
  Age: 79 Year
  Sex: Female

DRUGS (7)
  1. AVLOCARDYL [Suspect]
     Indication: HYPERTENSION
     Route: 048
  2. NEXIUM [Suspect]
     Route: 048
  3. CRESTOR [Suspect]
     Route: 048
  4. DAFALGAN [Suspect]
     Route: 048
  5. ASPEGIC 1000 [Concomitant]
  6. PRETERAX [Concomitant]
  7. LEXOMIL [Concomitant]

REACTIONS (2)
  - CELL DEATH [None]
  - JAUNDICE CHOLESTATIC [None]
